FAERS Safety Report 9726206 (Version 1)
Quarter: 2013Q4

REPORT INFORMATION
  Report Type: Spontaneous
  Country: US (occurrence: None)
  Receive Date: 20131202
  Receipt Date: 20131202
  Transmission Date: 20140711
  Serious: No
  Sender: FDA-Public Use
  Company Number: None

PATIENT
  Age: 67 Year
  Sex: Female

DRUGS (1)
  1. LETAIRIS [Suspect]
     Indication: PULMONARY HYPERTENSION
     Route: 048
     Dates: start: 20131010, end: 20131017

REACTIONS (6)
  - Arthralgia [None]
  - Muscular weakness [None]
  - Malaise [None]
  - Musculoskeletal pain [None]
  - Arthralgia [None]
  - Cognitive disorder [None]
